FAERS Safety Report 20526956 (Version 1)
Quarter: 2022Q1

REPORT INFORMATION
  Report Type: Spontaneous
  Country: US (occurrence: None)
  Receive Date: 20220228
  Receipt Date: 20220228
  Transmission Date: 20220423
  Serious: Yes (Hospitalization)
  Sender: FDA-Public Use
  Company Number: None

PATIENT
  Sex: Female

DRUGS (1)
  1. TOBRAMYCIN [Suspect]
     Active Substance: TOBRAMYCIN
     Indication: Bronchiectasis
     Dosage: FREQUENCY : TWICE A DAY; TWICE DAILY FOR 28 DAYS ON, THEN 28 DAYS OFF.  ;?
     Route: 055
     Dates: start: 20211123

REACTIONS (2)
  - Cerebrovascular accident [None]
  - Therapy interrupted [None]
